FAERS Safety Report 20621943 (Version 1)
Quarter: 2022Q1

REPORT INFORMATION
  Report Type: Spontaneous
  Country: US (occurrence: US)
  Receive Date: 20220322
  Receipt Date: 20220322
  Transmission Date: 20220423
  Serious: No
  Sender: FDA-Public Use
  Company Number: US-PFIZER INC-2021820503

PATIENT
  Age: 80 Year
  Weight: 55 kg

DRUGS (1)
  1. CELECOXIB [Suspect]
     Active Substance: CELECOXIB
     Indication: Osteoarthritis
     Dosage: 200 MG, 1X/DAY
     Dates: start: 20040417

REACTIONS (2)
  - Drug ineffective [Not Recovered/Not Resolved]
  - Hypoacusis [Unknown]
